FAERS Safety Report 10503739 (Version 1)
Quarter: 2014Q4

REPORT INFORMATION
  Report Type: Spontaneous
  Country: CA (occurrence: CA)
  Receive Date: 20141008
  Receipt Date: 20141008
  Transmission Date: 20150528
  Serious: Yes (Hospitalization, Disabling, Other)
  Sender: FDA-Public Use
  Company Number: CA-009507513-1410CAN002766

PATIENT
  Age: 63 Year
  Sex: Male

DRUGS (1)
  1. JANUMET [Suspect]
     Active Substance: METFORMIN HYDROCHLORIDE\SITAGLIPTIN PHOSPHATE
     Indication: DIABETES MELLITUS
     Dosage: DOSE STRENGTH: 50/1000MG, SAILY DOSE 50/1000MG
     Route: 048

REACTIONS (5)
  - Amnesia [Unknown]
  - Diabetic neuropathy [Unknown]
  - Localised infection [Unknown]
  - Diabetes mellitus inadequate control [Unknown]
  - Toe amputation [Unknown]

NARRATIVE: CASE EVENT DATE: 2014
